FAERS Safety Report 15181795 (Version 1)
Quarter: 2018Q3

REPORT INFORMATION
  Report Type: Spontaneous
  Country: AT (occurrence: AT)
  Receive Date: 20180723
  Receipt Date: 20180723
  Transmission Date: 20181010
  Serious: Yes (Hospitalization)
  Sender: FDA-Public Use
  Company Number: AT-SA-2018SA196224

PATIENT
  Age: 65 Year
  Sex: Female
  Weight: 89 kg

DRUGS (19)
  1. ULSAL [Concomitant]
     Active Substance: RANITIDINE HYDROCHLORIDE
     Dosage: ONGOING = CHECKED
     Route: 065
     Dates: start: 20170414
  2. ANDOL [ACETYLSALICYLIC ACID] [Concomitant]
     Indication: HYPERTENSION
     Dosage: ONGOING = CHECKED
     Route: 065
     Dates: start: 20171120
  3. ANASTROZOLE. [Suspect]
     Active Substance: ANASTROZOLE
     Indication: BREAST CANCER METASTATIC
     Dosage: 1 MG, QD
     Route: 048
     Dates: start: 20170324, end: 20180514
  4. TRASTUZUMAB. [Suspect]
     Active Substance: TRASTUZUMAB
     Indication: BREAST CANCER METASTATIC
     Dosage: 712 MG, Q3W
     Route: 042
     Dates: start: 20180608, end: 20180608
  5. DEXAMETHASONE. [Concomitant]
     Active Substance: DEXAMETHASONE
     Route: 065
     Dates: start: 20170414
  6. KYTRIL [Concomitant]
     Active Substance: GRANISETRON HYDROCHLORIDE
     Route: 065
     Dates: start: 20180608
  7. TRASTUZUMAB. [Suspect]
     Active Substance: TRASTUZUMAB
     Dosage: 712 MG, Q3W
     Route: 042
     Dates: start: 20170714, end: 20170714
  8. PERTUZUMAB. [Suspect]
     Active Substance: PERTUZUMAB
     Indication: BREAST CANCER METASTATIC
     Dosage: 840 MG, Q3W
     Route: 042
     Dates: start: 20171213, end: 20171213
  9. PERTUZUMAB. [Suspect]
     Active Substance: PERTUZUMAB
     Dosage: 840 MG, Q3W
     Route: 042
     Dates: start: 20170714, end: 20170714
  10. PERTUZUMAB. [Suspect]
     Active Substance: PERTUZUMAB
     Dosage: 840 MG, Q3W
     Route: 042
     Dates: start: 20170324, end: 20170324
  11. CORTISON [Concomitant]
     Active Substance: CORTISONE ACETATE
     Route: 065
     Dates: start: 20180608
  12. TAXOTERE [Suspect]
     Active Substance: DOCETAXEL
     Indication: BREAST CANCER
     Dosage: 137 MG, Q3W
     Route: 042
     Dates: start: 20180608, end: 20180608
  13. TRASTUZUMAB. [Suspect]
     Active Substance: TRASTUZUMAB
     Dosage: 712 MG, Q3W
     Route: 042
     Dates: start: 20170324, end: 20170324
  14. PANTOPRAZOLE [Concomitant]
     Active Substance: PANTOPRAZOLE
     Dosage: ONGOING = CHECKED
     Route: 065
  15. VIBRAMYCIN [DOXYCYCLINE] [Concomitant]
     Indication: SINUSITIS
     Route: 065
     Dates: start: 20180417, end: 20180615
  16. CONCOR [Concomitant]
     Active Substance: BISOPROLOL FUMARATE
     Indication: HYPERTENSION
     Dosage: ONGOING = CHECKED
     Route: 065
     Dates: start: 20171120
  17. XGEVA [Concomitant]
     Active Substance: DENOSUMAB
     Route: 065
     Dates: start: 20170505
  18. FENISTIL [Concomitant]
     Active Substance: DIMETHINDENE
     Dosage: ONGOING = CHECKED
     Route: 065
     Dates: start: 20170414
  19. TORASEMID [Concomitant]
     Active Substance: TORSEMIDE
     Indication: HYPERTENSION
     Dosage: UNK
     Route: 065
     Dates: start: 20121213

REACTIONS (2)
  - Dyspnoea [Not Recovered/Not Resolved]
  - Dyspnoea exertional [Unknown]

NARRATIVE: CASE EVENT DATE: 20171030
